FAERS Safety Report 20540121 (Version 1)
Quarter: 2022Q1

REPORT INFORMATION
  Report Type: Spontaneous
  Country: BR (occurrence: BR)
  Receive Date: 20220302
  Receipt Date: 20220302
  Transmission Date: 20220424
  Serious: Yes (Other)
  Sender: FDA-Public Use
  Company Number: BR-JNJFOC-20211147588

PATIENT
  Age: 26 Year
  Sex: Male
  Weight: 56 kg

DRUGS (4)
  1. INFLIXIMAB [Suspect]
     Active Substance: INFLIXIMAB
     Indication: Crohn^s disease
     Route: 042
  2. INFLIXIMAB [Suspect]
     Active Substance: INFLIXIMAB
     Dosage: 3 VIALS EVERY 30 DAYS
     Route: 042
  3. AZATHIOPRINE [Concomitant]
     Active Substance: AZATHIOPRINE
     Dosage: AZATHIOPRINE 50 MG 2 TABLETS DAILY
  4. PREDNISOLONE [Concomitant]
     Active Substance: PREDNISOLONE
     Dosage: , PREDNISOLONE 20 MG 2 TABLETS 2X DAILY

REACTIONS (7)
  - Haematochezia [Unknown]
  - Asthenia [Unknown]
  - Pallor [Unknown]
  - Abdominal pain [Unknown]
  - Decreased appetite [Unknown]
  - Product use issue [Unknown]
  - Off label use [Unknown]
